FAERS Safety Report 6765077-7 (Version None)
Quarter: 2010Q2

REPORT INFORMATION
  Report Type: 
  Country: None (occurrence: None)
  Receive Date: 20100609
  Receipt Date: 20100609
  Transmission Date: 20101027
  Serious: Yes (Life-Threatening, Hospitalization, Other)
  Sender: FDA-Public Use
  Company Number: None

PATIENT
  Sex: Female
  Weight: 71.2147 kg

DRUGS (2)
  1. LEXAPRO [Suspect]
     Indication: BACK PAIN
     Dosage: 5 MG 2 X DAILY PO
     Route: 048
     Dates: start: 20090901, end: 20091105
  2. LEXAPRO [Suspect]
     Dates: start: 20091125, end: 20091231

REACTIONS (3)
  - PRODUCT QUALITY ISSUE [None]
  - RECTAL HAEMORRHAGE [None]
  - TRANSFUSION [None]
